FAERS Safety Report 4894928-6 (Version None)
Quarter: 2006Q1

REPORT INFORMATION
  Report Type: 
  Country: None (occurrence: None)
  Receive Date: 20060130
  Receipt Date: 20050322
  Transmission Date: 20060701
  Serious: No
  Sender: FDA-Public Use
  Company Number: US-BRISTOL-MYERS SQUIBB COMPANY-12905964

PATIENT
  Age: 73 Year
  Sex: Male
  Weight: 91 kg

DRUGS (7)
  1. METFORMIN HCL [Suspect]
  2. ALEVE [Suspect]
     Indication: ARTHRALGIA
     Route: 048
     Dates: start: 20041220, end: 20041220
  3. NAPROXEN [Suspect]
     Route: 048
  4. LISINOPRIL [Concomitant]
  5. ASPIRIN [Concomitant]
     Indication: PROPHYLAXIS
  6. GLYBURIDE [Concomitant]
  7. AMLODIPINE BESYLATE [Concomitant]

REACTIONS (3)
  - DIZZINESS [None]
  - FEELING JITTERY [None]
  - JOINT SWELLING [None]
